FAERS Safety Report 6151866-9 (Version None)
Quarter: 2009Q2

REPORT INFORMATION
  Report Type: 
  Country: None (occurrence: None)
  Receive Date: 20090408
  Receipt Date: 20090330
  Transmission Date: 20091009
  Serious: Yes (Death, Hospitalization)
  Sender: FDA-Public Use
  Company Number: 2004JP002264

PATIENT
  Age: 10 Year
  Sex: Male

DRUGS (5)
  1. PROGRAF [Suspect]
     Indication: CORD BLOOD TRANSPLANT THERAPY
  2. FLUDARABINE PHOSPHATE [Concomitant]
  3. MELPHALAN (MELPHALAN) [Concomitant]
  4. ATGAM [Concomitant]
  5. METHYLPREDNISOLONE 16MG TAB [Concomitant]

REACTIONS (9)
  - HEADACHE [None]
  - HEPATIC HAEMORRHAGE [None]
  - INTESTINAL ISCHAEMIA [None]
  - NO THERAPEUTIC RESPONSE [None]
  - PHOTOPHOBIA [None]
  - PUNCTURE SITE HAEMORRHAGE [None]
  - SHOCK HAEMORRHAGIC [None]
  - THROMBOTIC MICROANGIOPATHY [None]
  - TREMOR [None]
